FAERS Safety Report 6781983-1 (Version None)
Quarter: 2010Q2

REPORT INFORMATION
  Report Type: 
  Country: None (occurrence: None)
  Receive Date: 20100618
  Receipt Date: 20100618
  Transmission Date: 20101027
  Serious: No
  Sender: FDA-Public Use
  Company Number: None

PATIENT
  Sex: Female
  Weight: 63.5036 kg

DRUGS (2)
  1. PHENYTOIN [Suspect]
     Indication: EPILEPSY
     Dosage: 100 MG TID
     Dates: start: 20100310
  2. PHENYTOIN [Suspect]
     Indication: EPILEPSY
     Dosage: 100 MG TID
     Dates: start: 20100414

REACTIONS (5)
  - CONFUSIONAL STATE [None]
  - DISORIENTATION [None]
  - EYE ROLLING [None]
  - HEADACHE [None]
  - TONIC CLONIC MOVEMENTS [None]
